FAERS Safety Report 6530826-X (Version None)
Quarter: 2010Q1

REPORT INFORMATION
  Report Type: 
  Country: None (occurrence: None)
  Receive Date: 20100108
  Receipt Date: 20090324
  Transmission Date: 20100710
  Serious: No
  Sender: FDA-Public Use
  Company Number: A0775054A

PATIENT
  Age: 52 Year
  Sex: Male

DRUGS (10)
  1. LOVAZA [Suspect]
     Dosage: 4G PER DAY
     Route: 048
     Dates: start: 20050101
  2. BYETTA [Concomitant]
  3. METFORMIN HYDROCHLORIDE [Concomitant]
     Route: 048
  4. ALTACE [Concomitant]
  5. FEXOFENADINE [Concomitant]
  6. ASPIRIN [Concomitant]
  7. NIASPAN ER [Concomitant]
  8. SINGULAIR [Concomitant]
  9. TRICOR [Concomitant]
  10. VERAPAMIL EXTENDED-RELEASE [Concomitant]

REACTIONS (3)
  - BLOOD TRIGLYCERIDES INCREASED [None]
  - INCORRECT STORAGE OF DRUG [None]
  - MALAISE [None]
